FAERS Safety Report 17581419 (Version 2)
Quarter: 2020Q3

REPORT INFORMATION
  Report Type: Spontaneous
  Country: US (occurrence: US)
  Receive Date: 20200325
  Receipt Date: 20200910
  Transmission Date: 20201102
  Serious: Yes (Hospitalization, Other)
  Sender: FDA-Public Use
  Company Number: US-GILEAD-2020-0455995

PATIENT
  Age: 50 Year
  Sex: Male
  Weight: 86.17 kg

DRUGS (56)
  1. ATRIPLA [Suspect]
     Active Substance: EFAVIRENZ\EMTRICITABINE\TENOFOVIR DISOPROXIL FUMARATE
     Indication: HIV INFECTION
     Dosage: UNK
     Route: 048
     Dates: start: 2006
  2. ACTOS [Concomitant]
     Active Substance: PIOGLITAZONE HYDROCHLORIDE
  3. CIPROFLOXACIN. [Concomitant]
     Active Substance: CIPROFLOXACIN
  4. EDARBI [Concomitant]
     Active Substance: AZILSARTAN KAMEDOXOMIL
  5. FOLIC ACID. [Concomitant]
     Active Substance: FOLIC ACID
  6. POTASSIUM CHLORIDE. [Concomitant]
     Active Substance: POTASSIUM CHLORIDE
  7. SODIUM BICARBONATE. [Concomitant]
     Active Substance: SODIUM BICARBONATE
  8. ZINC. [Concomitant]
     Active Substance: ZINC
  9. CLOPIDROGEL SANDOZ [Concomitant]
     Active Substance: CLOPIDOGREL BISULFATE
  10. DOXYCYCLINE HYCLATE. [Concomitant]
     Active Substance: DOXYCYCLINE HYCLATE
  11. FLEXERIL [CEFIXIME] [Concomitant]
     Active Substance: CEFIXIME
  12. LANTUS [Concomitant]
     Active Substance: INSULIN GLARGINE
  13. NIACIN. [Concomitant]
     Active Substance: NIACIN
  14. ZOFRAN [Concomitant]
     Active Substance: ONDANSETRON HYDROCHLORIDE
  15. ATRIPLA [Suspect]
     Active Substance: EFAVIRENZ\EMTRICITABINE\TENOFOVIR DISOPROXIL FUMARATE
     Dosage: UNK
     Route: 048
     Dates: start: 20150705, end: 20190328
  16. LAMIVUDINE. [Concomitant]
     Active Substance: LAMIVUDINE
  17. METOPROLOL TARTRATE. [Concomitant]
     Active Substance: METOPROLOL TARTRATE
  18. NEXIUM [Concomitant]
     Active Substance: ESOMEPRAZOLE MAGNESIUM
  19. PROMETHAZINE [Concomitant]
     Active Substance: PROMETHAZINE HYDROCHLORIDE
  20. SERTRALINE [Concomitant]
     Active Substance: SERTRALINE HYDROCHLORIDE
  21. AMARYL [Concomitant]
     Active Substance: GLIMEPIRIDE
  22. AMLODIPINE BESILATE [Concomitant]
     Active Substance: AMLODIPINE BESYLATE
  23. CYCLOBENZAPRINE. [Concomitant]
     Active Substance: CYCLOBENZAPRINE
  24. FEXOFENADINE [Concomitant]
     Active Substance: FEXOFENADINE HYDROCHLORIDE
  25. HYDROCODONE BITARTRATE AND ACETAMINOPHEN [Concomitant]
     Active Substance: ACETAMINOPHEN\HYDROCODONE BITARTRATE
  26. LIPITOR [Concomitant]
     Active Substance: ATORVASTATIN CALCIUM
  27. MELATONIN [Concomitant]
     Active Substance: MELATONIN
  28. OMEPRAZOLE. [Concomitant]
     Active Substance: OMEPRAZOLE
  29. VITAMIN D3 [Concomitant]
     Active Substance: CHOLECALCIFEROL
  30. ZOLOFT [Concomitant]
     Active Substance: SERTRALINE HYDROCHLORIDE
  31. ABACAVIR. [Concomitant]
     Active Substance: ABACAVIR
  32. ENALAPRIL MALEATE. [Concomitant]
     Active Substance: ENALAPRIL MALEATE
  33. FERROUS SULFATE. [Concomitant]
     Active Substance: FERROUS SULFATE
  34. TIVICAY [Concomitant]
     Active Substance: DOLUTEGRAVIR SODIUM
  35. CEFUROXIME. [Concomitant]
     Active Substance: CEFUROXIME
  36. CLONIDINE. [Concomitant]
     Active Substance: CLONIDINE
  37. FENOFIBRATE. [Concomitant]
     Active Substance: FENOFIBRATE
  38. IBUPROFEN. [Concomitant]
     Active Substance: IBUPROFEN
  39. OXYCODONE AND ACETAMINOPHEN [Concomitant]
     Active Substance: ACETAMINOPHEN\OXYCODONE HYDROCHLORIDE
  40. TOPROL XL [Concomitant]
     Active Substance: METOPROLOL SUCCINATE
  41. TRICOR [TETRACYCLINE HYDROCHLORIDE] [Concomitant]
     Active Substance: TETRACYCLINE HYDROCHLORIDE
  42. VITAMIN B12 [Concomitant]
     Active Substance: CYANOCOBALAMIN
  43. FUROSEMIDE. [Concomitant]
     Active Substance: FUROSEMIDE
  44. AMOXICILLIN. [Concomitant]
     Active Substance: AMOXICILLIN
  45. ASPIRIN [ACETYLSALICYLIC ACID] [Concomitant]
     Active Substance: ASPIRIN
  46. ATORVASTATIN [Concomitant]
     Active Substance: ATORVASTATIN
  47. FLONASE [Concomitant]
     Active Substance: FLUTICASONE PROPIONATE
  48. LOSARTAN. [Concomitant]
     Active Substance: LOSARTAN
  49. NORVASC [Concomitant]
     Active Substance: AMLODIPINE BESYLATE
  50. VITAMIN D2 [Concomitant]
     Active Substance: ERGOCALCIFEROL
  51. HYDROCHLOROTHIAZIDE. [Concomitant]
     Active Substance: HYDROCHLOROTHIAZIDE
  52. JANUVIA [Concomitant]
     Active Substance: SITAGLIPTIN PHOSPHATE
  53. PIOGLITAZONE. [Concomitant]
     Active Substance: PIOGLITAZONE
  54. PLAVIX [Concomitant]
     Active Substance: CLOPIDOGREL BISULFATE
  55. PROTONIX [OMEPRAZOLE] [Concomitant]
     Active Substance: OMEPRAZOLE
  56. TRIGLIDE [Concomitant]
     Active Substance: FENOFIBRATE

REACTIONS (13)
  - Anxiety [Not Recovered/Not Resolved]
  - Economic problem [Not Recovered/Not Resolved]
  - Emotional distress [Not Recovered/Not Resolved]
  - Acute kidney injury [Unknown]
  - Pain [Unknown]
  - Chronic kidney disease [Not Recovered/Not Resolved]
  - Pain [Not Recovered/Not Resolved]
  - Acute kidney injury [Unknown]
  - End stage renal disease [Unknown]
  - Anhedonia [Not Recovered/Not Resolved]
  - Renal failure [Not Recovered/Not Resolved]
  - Depression [Unknown]
  - Emotional distress [Unknown]

NARRATIVE: CASE EVENT DATE: 201612
